FAERS Safety Report 19384108 (Version 2)
Quarter: 2021Q2

REPORT INFORMATION
  Report Type: Spontaneous
  Country: US (occurrence: US)
  Receive Date: 20210608
  Receipt Date: 20210617
  Transmission Date: 20210717
  Serious: Yes (Other)
  Sender: FDA-Public Use
  Company Number: US-MSNLABS-2021MSNSPO00134

PATIENT

DRUGS (3)
  1. PREDNISONE. [Concomitant]
     Active Substance: PREDNISONE
     Indication: PRODUCT USED FOR UNKNOWN INDICATION
     Route: 065
  2. ABIRATERONE ACETATE TABLETS 250MG [Suspect]
     Active Substance: ABIRATERONE ACETATE
  3. ABIRATERONE ACETATE TABLETS 250MG [Suspect]
     Active Substance: ABIRATERONE ACETATE
     Indication: PROSTATE CANCER
     Route: 065
     Dates: start: 20210512

REACTIONS (7)
  - Flatulence [Unknown]
  - Product size issue [Unknown]
  - Drug ineffective [Unknown]
  - Nausea [Unknown]
  - Abdominal pain upper [Unknown]
  - Product physical issue [Unknown]
  - Product use complaint [Unknown]

NARRATIVE: CASE EVENT DATE: 20210512
